FAERS Safety Report 22248274 (Version 2)
Quarter: 2023Q2

REPORT INFORMATION
  Report Type: Other
  Country: ZA (occurrence: None)
  Receive Date: 20230425
  Receipt Date: 20230430
  Transmission Date: 20230721
  Serious: Yes (Other)
  Sender: FDA-Public Use
  Company Number: ZA-ROCHE-3332519

PATIENT
  Sex: Female

DRUGS (1)
  1. OCREVUS [Suspect]
     Active Substance: OCRELIZUMAB
     Indication: Relapsing multiple sclerosis
     Dosage: 600MG EVERY 6 MONTHS
     Route: 041

REACTIONS (6)
  - Demyelination [Unknown]
  - Magnetic resonance imaging spinal abnormal [Unknown]
  - Intervertebral disc degeneration [Unknown]
  - Spinal osteoarthritis [Unknown]
  - Facet joint syndrome [Unknown]
  - Cervical spinal stenosis [Unknown]
